FAERS Safety Report 5142667-9 (Version None)
Quarter: 2006Q4

REPORT INFORMATION
  Report Type: 
  Country: None (occurrence: None)
  Receive Date: 20061027
  Receipt Date: 20061025
  Transmission Date: 20070319
  Serious: Yes (Disabling)
  Sender: FDA-Public Use
  Company Number: 06H-163-0310824-00

PATIENT
  Age: 79 Year
  Sex: Male

DRUGS (1)
  1. HEPARIN SODIUM INJECTION [Suspect]
     Indication: ATRIAL FIBRILLATION

REACTIONS (2)
  - FEMORAL NERVE PALSY [None]
  - RETROPERITONEAL HAEMORRHAGE [None]
